FAERS Safety Report 9486347 (Version 3)
Quarter: 2015Q3

REPORT INFORMATION
  Report Type: Report from Study
  Country: US (occurrence: US)
  Receive Date: 20130829
  Receipt Date: 20150901
  Transmission Date: 20151125
  Serious: Yes (Death, Hospitalization, Other)
  Sender: FDA-Public Use
  Company Number: US-ASTELLAS-2013US008960

PATIENT
  Age: 76 Year
  Sex: Male
  Weight: 46 kg

DRUGS (7)
  1. DIFLUCAN [Concomitant]
     Active Substance: FLUCONAZOLE
     Indication: PRODUCT USED FOR UNKNOWN INDICATION
     Route: 048
  2. ZOFRAN [Concomitant]
     Active Substance: ONDANSETRON HYDROCHLORIDE
     Indication: PRODUCT USED FOR UNKNOWN INDICATION
     Dosage: 8 MG, EVERY 8 HOURS AS NEEDED
     Route: 048
  3. GLIMEPIRIDE. [Concomitant]
     Active Substance: GLIMEPIRIDE
     Indication: PRODUCT USED FOR UNKNOWN INDICATION
     Dosage: 0.5 MG, UNKNOWN FREQ.
     Route: 048
  4. ERLOTINIB [Suspect]
     Active Substance: ERLOTINIB
     Indication: ACUTE MYELOID LEUKAEMIA
     Route: 048
     Dates: start: 20130809, end: 20130820
  5. TRAMADOL. [Concomitant]
     Active Substance: TRAMADOL
     Indication: PRODUCT USED FOR UNKNOWN INDICATION
     Dosage: 50 MG, EVERY 12 HOURS AS NEEDED
     Route: 048
  6. ALPHAGAN P [Concomitant]
     Active Substance: BRIMONIDINE TARTRATE
     Indication: GLAUCOMA
     Dosage: 0.15 %, 1 DROP EACH DAY TWICE DAILY
     Route: 047
  7. VANTIN                             /00139502/ [Concomitant]
     Indication: PRODUCT USED FOR UNKNOWN INDICATION
     Route: 048

REACTIONS (11)
  - Anaemia [Unknown]
  - Fatigue [Unknown]
  - Neutropenia [Unknown]
  - Renal failure [Unknown]
  - Thrombocytopenia [Unknown]
  - Confusional state [Unknown]
  - Off label use [Unknown]
  - Sepsis [Fatal]
  - Fall [Unknown]
  - Bone pain [Unknown]
  - Liver function test abnormal [Unknown]

NARRATIVE: CASE EVENT DATE: 201308
